FAERS Safety Report 7272961-7 (Version None)
Quarter: 2011Q1

REPORT INFORMATION
  Report Type: 
  Country: None (occurrence: None)
  Receive Date: 20110203
  Receipt Date: 20110124
  Transmission Date: 20110831
  Serious: Yes (Death, Congenital Anomaly)
  Sender: FDA-Public Use
  Company Number: A0871550A

PATIENT
  Sex: Male

DRUGS (1)
  1. PAXIL [Suspect]
     Route: 064

REACTIONS (3)
  - HYPOPLASTIC LEFT HEART SYNDROME [None]
  - DRUG EXPOSURE DURING PREGNANCY [None]
  - DEATH [None]
